FAERS Safety Report 5938046-4 (Version None)
Quarter: 2008Q4

REPORT INFORMATION
  Report Type: 
  Country: None (occurrence: None)
  Receive Date: 20081031
  Receipt Date: 20081020
  Transmission Date: 20090506
  Serious: Yes (Life-Threatening, Hospitalization, Disabling)
  Sender: FDA-Public Use
  Company Number: FI-PFIZER INC-2008088616

PATIENT
  Sex: Female

DRUGS (4)
  1. DALACIN [Suspect]
     Indication: TONSILLITIS
     Route: 048
     Dates: start: 20080801, end: 20080806
  2. SERTRALINE [Suspect]
     Indication: DEPRESSION
     Route: 048
     Dates: start: 20060101, end: 20080801
  3. ALL OTHER THERAPEUTIC PRODUCTS [Concomitant]
  4. ANTIBIOTICS [Concomitant]

REACTIONS (14)
  - CARDIAC FAILURE [None]
  - DISSEMINATED INTRAVASCULAR COAGULATION [None]
  - DYSPEPSIA [None]
  - HYPOTENSION [None]
  - HYPOVENTILATION [None]
  - LEUKOPENIA [None]
  - MALAISE [None]
  - OXYGEN SATURATION ABNORMAL [None]
  - PNEUMONIA [None]
  - RENAL FAILURE [None]
  - RESPIRATORY FAILURE [None]
  - SEPTIC SHOCK [None]
  - TACHYCARDIA [None]
  - THROMBOCYTOPENIA [None]
